FAERS Safety Report 21739843 (Version 1)
Quarter: 2022Q4

REPORT INFORMATION
  Report Type: Report from Study
  Country: CO (occurrence: CO)
  Receive Date: 20221216
  Receipt Date: 20221216
  Transmission Date: 20230113
  Serious: Yes (Other)
  Sender: FDA-Public Use
  Company Number: CO-UCBSA-2022070682

PATIENT
  Age: 70 Year
  Sex: Male

DRUGS (3)
  1. ROTIGOTINE [Suspect]
     Active Substance: ROTIGOTINE
     Indication: Parkinson^s disease
     Dosage: HALF OF AN 8MG PATCH
     Route: 062
     Dates: start: 20221208
  2. CARBIDOPA\LEVODOPA [Concomitant]
     Active Substance: CARBIDOPA\LEVODOPA
     Indication: Parkinson^s disease
     Dosage: UNK
  3. AMANTADINA [AMANTADINE] [Concomitant]
     Indication: Parkinson^s disease
     Dosage: UNK

REACTIONS (2)
  - Parkinson^s disease [Recovering/Resolving]
  - Off label use [Unknown]

NARRATIVE: CASE EVENT DATE: 20221208
